FAERS Safety Report 21105743 (Version 4)
Quarter: 2022Q3

REPORT INFORMATION
  Report Type: Report from Study
  Country: US (occurrence: US)
  Receive Date: 20220720
  Receipt Date: 20220927
  Transmission Date: 20221027
  Serious: Yes (Other)
  Sender: FDA-Public Use
  Company Number: US-OTSUKA-2022_034575

PATIENT
  Sex: Female

DRUGS (3)
  1. CEDAZURIDINE\DECITABINE [Suspect]
     Active Substance: CEDAZURIDINE\DECITABINE
     Indication: Chronic myelomonocytic leukaemia
     Dosage: 1 DF (35 MG DECITABINE AND 100 MG CEDAZURIDINE), QD 1-5 DAYS EVERY 28 DAY CYCLE
     Route: 048
     Dates: start: 20220615
  2. CEDAZURIDINE\DECITABINE [Suspect]
     Active Substance: CEDAZURIDINE\DECITABINE
     Indication: Myelodysplastic syndrome
  3. ERYTHROPOIETIN [Concomitant]
     Active Substance: ERYTHROPOIETIN
     Indication: Product used for unknown indication
     Dosage: UNK
     Route: 065

REACTIONS (14)
  - Transfusion [Unknown]
  - Malaise [Unknown]
  - Dry mouth [Unknown]
  - Thirst [Unknown]
  - Confusional state [Unknown]
  - Memory impairment [Unknown]
  - Alopecia [Unknown]
  - Vision blurred [Recovering/Resolving]
  - Hiccups [Unknown]
  - Erythema [Unknown]
  - Balance disorder [Unknown]
  - Fatigue [Unknown]
  - Diarrhoea [Unknown]
  - Headache [Unknown]
